FAERS Safety Report 13332328 (Version 1)
Quarter: 2017Q1

REPORT INFORMATION
  Report Type: Spontaneous
  Country: US (occurrence: US)
  Receive Date: 20170314
  Receipt Date: 20170314
  Transmission Date: 20170428
  Serious: Yes (Other)
  Sender: FDA-Public Use
  Company Number: PHEH2017US006873

PATIENT
  Sex: Female

DRUGS (1)
  1. AFINITOR [Suspect]
     Active Substance: EVEROLIMUS
     Dosage: 10 MG, QD
     Route: 065
     Dates: start: 2011

REACTIONS (4)
  - Squamous cell carcinoma [Unknown]
  - Basal cell carcinoma [Unknown]
  - Second primary malignancy [Unknown]
  - Intestinal obstruction [Unknown]
